FAERS Safety Report 6937672-3 (Version None)
Quarter: 2010Q3

REPORT INFORMATION
  Report Type: 
  Country: None (occurrence: None)
  Receive Date: 20100820
  Receipt Date: 20100820
  Transmission Date: 20110219
  Serious: Yes (Other)
  Sender: FDA-Public Use
  Company Number: None

PATIENT
  Age: 28 Year
  Sex: Female
  Weight: 86.1834 kg

DRUGS (1)
  1. PAXIL [Suspect]

REACTIONS (9)
  - CRYING [None]
  - DRUG DEPENDENCE [None]
  - FEELING ABNORMAL [None]
  - HEADACHE [None]
  - PAIN [None]
  - PARAESTHESIA [None]
  - PRODUCT QUALITY ISSUE [None]
  - SUICIDAL IDEATION [None]
  - VOMITING [None]
